FAERS Safety Report 11606663 (Version 2)
Quarter: 2015Q4

REPORT INFORMATION
  Report Type: Spontaneous
  Country: US (occurrence: US)
  Receive Date: 20151007
  Receipt Date: 20151215
  Transmission Date: 20160304
  Serious: No
  Sender: FDA-Public Use
  Company Number: US-GLAXOSMITHKLINE-US2015GSK125972

PATIENT
  Age: 51 Year
  Sex: Female

DRUGS (5)
  1. TANZEUM [Suspect]
     Active Substance: ALBIGLUTIDE
     Dosage: 30 UNK,
  2. TANZEUM [Suspect]
     Active Substance: ALBIGLUTIDE
     Dosage: 50 MG, UNK
  3. METFORMIN MODIFIED-RELEASE TABLET [Suspect]
     Active Substance: METFORMIN HYDROCHLORIDE
     Indication: PRODUCT USED FOR UNKNOWN INDICATION
     Dosage: UNK
     Dates: end: 20150831
  4. TANZEUM [Suspect]
     Active Substance: ALBIGLUTIDE
     Indication: TYPE 2 DIABETES MELLITUS
     Dosage: 50 MG, WE
     Route: 042
     Dates: start: 20150731
  5. METFORMIN [Concomitant]
     Active Substance: METFORMIN HYDROCHLORIDE

REACTIONS (11)
  - Drug dose omission [Unknown]
  - Device use error [Unknown]
  - Energy increased [Unknown]
  - Weight decreased [Unknown]
  - Injection site swelling [Recovering/Resolving]
  - Injection site pruritus [Unknown]
  - Injection site erythema [Not Recovered/Not Resolved]
  - Diarrhoea [Recovered/Resolved]
  - Injection site pain [None]
  - Pain [Unknown]
  - Hypersensitivity [Recovered/Resolved]
